FAERS Safety Report 18595022 (Version 1)
Quarter: 2020Q4

REPORT INFORMATION
  Report Type: Spontaneous
  Country: FR (occurrence: FR)
  Receive Date: 20201209
  Receipt Date: 20201209
  Transmission Date: 20210114
  Serious: Yes (Hospitalization)
  Sender: FDA-Public Use
  Company Number: FR-TEVA-2020-FR-1855677

PATIENT
  Age: 31 Year
  Sex: Male

DRUGS (2)
  1. SUBUTEX [Suspect]
     Active Substance: BUPRENORPHINE HYDROCHLORIDE
     Indication: DRUG ABUSE
  2. METHYLPHENIDATE. [Suspect]
     Active Substance: METHYLPHENIDATE
     Indication: DRUG ABUSE
     Dates: start: 20201030

REACTIONS (2)
  - Drug abuse [Not Recovered/Not Resolved]
  - Agitation [Recovering/Resolving]

NARRATIVE: CASE EVENT DATE: 20201031
